FAERS Safety Report 8618743-2 (Version None)
Quarter: 2012Q3

REPORT INFORMATION
  Report Type: 
  Country: None (occurrence: None)
  Receive Date: 20120815
  Receipt Date: 20120815
  Transmission Date: 20120928
  Serious: No
  Sender: FDA-Public Use
  Company Number: None

PATIENT
  Age: 43 Year
  Sex: Female
  Weight: 68.0396 kg

DRUGS (1)
  1. LEVOTHYROXINE SODIUM [Suspect]
     Indication: HYPOTHYROIDISM
     Dosage: 2 TABLETS, ONCE DAILY, PO
     Route: 048
     Dates: start: 20111020, end: 20120813

REACTIONS (2)
  - PRODUCT SUBSTITUTION ISSUE [None]
  - FATIGUE [None]
